FAERS Safety Report 8835149 (Version 1)
Quarter: 2012Q4

REPORT INFORMATION
  Report Type: 
  Country: GB (occurrence: GB)
  Receive Date: 20121011
  Receipt Date: 20121011
  Transmission Date: 20130627
  Serious: Yes (Hospitalization)
  Sender: FDA-Public Use
  Company Number: GB-PFIZER INC-2012249953

PATIENT
  Age: 55 Year
  Sex: Female

DRUGS (1)
  1. LIPITOR [Suspect]
     Dosage: 80 mg, daily

REACTIONS (5)
  - Heart rate increased [Unknown]
  - Heart rate irregular [Unknown]
  - Pain in extremity [Unknown]
  - Constipation [Unknown]
  - Dyspepsia [Unknown]
